FAERS Safety Report 18923075 (Version 1)
Quarter: 2021Q1

REPORT INFORMATION
  Report Type: Spontaneous
  Country: DE (occurrence: DE)
  Receive Date: 20210222
  Receipt Date: 20210222
  Transmission Date: 20210420
  Serious: Yes (Death)
  Sender: FDA-Public Use
  Company Number: DE-IBIGEN-2021.09907

PATIENT
  Age: 74 Year
  Sex: Female

DRUGS (1)
  1. PIPERACILLIN (MANUFACTURER UNKNOWN) [Suspect]
     Active Substance: PIPERACILLIN SODIUM
     Indication: PRODUCT USED FOR UNKNOWN INDICATION

REACTIONS (4)
  - Haemolytic anaemia [Fatal]
  - Haemolysis [Fatal]
  - Autoimmune haemolytic anaemia [Fatal]
  - Intravascular haemolysis [Fatal]
